FAERS Safety Report 12333649 (Version 4)
Quarter: 2018Q2

REPORT INFORMATION
  Report Type: Spontaneous
  Country: US (occurrence: US)
  Receive Date: 20160504
  Receipt Date: 20180507
  Transmission Date: 20180711
  Serious: No
  Sender: FDA-Public Use
  Company Number: US-ROCHE-1655280

PATIENT
  Sex: Female

DRUGS (9)
  1. ESBRIET [Suspect]
     Active Substance: PIRFENIDONE
     Indication: IDIOPATHIC PULMONARY FIBROSIS
     Route: 048
     Dates: start: 20150821
  2. LIPITOR [Concomitant]
     Active Substance: ATORVASTATIN CALCIUM
  3. LOPRESSOR [Concomitant]
     Active Substance: METOPROLOL TARTRATE
  4. SYNTHROID [Concomitant]
     Active Substance: LEVOTHYROXINE SODIUM
  5. TRICOR [Concomitant]
     Active Substance: FENOFIBRATE
  6. BABY ASPIRIN [Concomitant]
     Active Substance: ASPIRIN
  7. ESBRIET [Suspect]
     Active Substance: PIRFENIDONE
     Route: 048
     Dates: start: 20161104
  8. ESBRIET [Suspect]
     Active Substance: PIRFENIDONE
     Dosage: UNKNOWN DOSAGE
     Route: 048
  9. DEMADEX [Concomitant]
     Active Substance: TORSEMIDE

REACTIONS (6)
  - Blood potassium decreased [Unknown]
  - Confusional state [Unknown]
  - Hepatic enzyme increased [Unknown]
  - Blood electrolytes decreased [Unknown]
  - Diarrhoea [Unknown]
  - Asthenia [Unknown]
